FAERS Safety Report 6960899-1 (Version None)
Quarter: 2010Q3

REPORT INFORMATION
  Report Type: 
  Country: None (occurrence: None)
  Receive Date: 20100901
  Receipt Date: 20100803
  Transmission Date: 20110219
  Serious: No
  Sender: FDA-Public Use
  Company Number: US-PFIZER INC-2010097826

PATIENT
  Sex: Female
  Weight: 59 kg

DRUGS (5)
  1. LIPITOR [Suspect]
     Indication: HYPERCHOLESTEROLAEMIA
     Route: 065
     Dates: start: 20060101, end: 20060707
  2. LIPITOR [Suspect]
     Dosage: 20 MG, 1X/DAY
  3. LIPITOR [Suspect]
     Dosage: 40 MG, 1X/DAY
  4. LIPITOR [Suspect]
     Dosage: 80 MG, 1X/DAY
     Route: 048
  5. NORVASC [Concomitant]

REACTIONS (1)
  - MUSCLE SPASMS [None]
